FAERS Safety Report 25388703 (Version 3)
Quarter: 2025Q3

REPORT INFORMATION
  Report Type: Spontaneous
  Country: MY (occurrence: MY)
  Receive Date: 20250603
  Receipt Date: 20250813
  Transmission Date: 20251020
  Serious: Yes (Life-Threatening, Hospitalization, Other)
  Sender: BAXTER
  Company Number: MY-BAXTER-2025BAX016023

PATIENT
  Age: 76 Year
  Sex: Male
  Weight: 52.8 kg

DRUGS (5)
  1. CYCLOPHOSPHAMIDE [Suspect]
     Active Substance: CYCLOPHOSPHAMIDE
     Indication: Diffuse large B-cell lymphoma
     Route: 042
     Dates: start: 20220510
  2. DOXORUBICIN [Suspect]
     Active Substance: DOXORUBICIN
     Indication: Diffuse large B-cell lymphoma
     Route: 042
     Dates: start: 20220510
  3. VINCRISTINE [Suspect]
     Active Substance: VINCRISTINE
     Indication: Diffuse large B-cell lymphoma
     Route: 042
     Dates: start: 20220510
  4. PREDNISOLONE [Suspect]
     Active Substance: PREDNISOLONE
     Indication: Diffuse large B-cell lymphoma
     Dosage: 200 MG, QID (GIVEN AS HYDROCORTISONE) OD ON DAY 1-5
     Route: 042
     Dates: start: 20220510
  5. RITUXIMAB [Suspect]
     Active Substance: RITUXIMAB
     Indication: Diffuse large B-cell lymphoma
     Route: 042
     Dates: start: 20220510

REACTIONS (6)
  - Small intestinal perforation [Recovered/Resolved]
  - Tumour necrosis [Unknown]
  - Gastrointestinal haemorrhage [Unknown]
  - Neuropathy peripheral [Unknown]
  - Intestinal fibrosis [Unknown]
  - Bedridden [Unknown]

NARRATIVE: CASE EVENT DATE: 20220513
